FAERS Safety Report 12719281 (Version 2)
Quarter: 2016Q3

REPORT INFORMATION
  Report Type: Report from Study
  Country: GB (occurrence: GB)
  Receive Date: 20160907
  Receipt Date: 20160918
  Transmission Date: 20161109
  Serious: Yes (Hospitalization)
  Sender: FDA-Public Use
  Company Number: GB-ROCHE-1826179

PATIENT
  Sex: Female
  Weight: 92 kg

DRUGS (3)
  1. TOCILIZUMAB [Suspect]
     Active Substance: TOCILIZUMAB
     Indication: RHEUMATOID ARTHRITIS
     Route: 042
     Dates: start: 20130117
  2. AZATHIOPRINE. [Concomitant]
     Active Substance: AZATHIOPRINE
     Indication: RHEUMATOID ARTHRITIS
  3. HYDROXYCHLOROQUINE [Concomitant]
     Active Substance: HYDROXYCHLOROQUINE
     Indication: RHEUMATOID ARTHRITIS

REACTIONS (5)
  - Dyspnoea [Unknown]
  - Lower respiratory tract infection [Unknown]
  - Fall [Unknown]
  - Lower limb fracture [Unknown]
  - Cough [Unknown]

NARRATIVE: CASE EVENT DATE: 20160312
